FAERS Safety Report 9156555 (Version 1)
Quarter: 2013Q1

REPORT INFORMATION
  Report Type: Spontaneous
  Country: PT (occurrence: None)
  Receive Date: 20130206
  Receipt Date: 20130206
  Transmission Date: 20140127
  Serious: Yes (Life-Threatening, Hospitalization, Disabling)
  Sender: FDA-Public Use
  Company Number: 2013-01867

PATIENT
  Age: 28 Year
  Sex: Male

DRUGS (2)
  1. TRAMADOL HYDROCHLORIDE (UNKNOWN) (TRAMADOL HYDROCHLORIDE) [Suspect]
     Indication: PAIN
     Route: 048
     Dates: start: 20120521
  2. TRAMADOL HYDROCHLORIDE AND ACETAMINOPHEN 37.5/325MG (WATSON) (TRAMADOL HYDROCHLORIDE ACETAMINOPHEN) [Suspect]
     Indication: PAIN
     Route: 048
     Dates: start: 20120521

REACTIONS (9)
  - Cardio-respiratory arrest [None]
  - Abnormal behaviour [None]
  - Loss of consciousness [None]
  - Toxicity to various agents [None]
  - Convulsion [None]
  - Weight decreased [None]
  - Balance disorder [None]
  - Fatigue [None]
  - Anxiety [None]
